FAERS Safety Report 19607351 (Version 1)
Quarter: 2021Q3

REPORT INFORMATION
  Report Type: Other
  Country: FR (occurrence: FR)
  Receive Date: 20210726
  Receipt Date: 20210726
  Transmission Date: 20211014
  Serious: Yes (Hospitalization, Other)
  Sender: FDA-Public Use
  Company Number: FR-APOTEX-2021AP019985

PATIENT
  Age: 13 Year
  Sex: Female

DRUGS (2)
  1. ALPRAZOLAM. [Suspect]
     Active Substance: ALPRAZOLAM
     Indication: TOXICITY TO VARIOUS AGENTS
     Dosage: 15 DOSAGE FORM
     Route: 048
     Dates: start: 20210423, end: 20210423
  2. PAROXETINE HYDROCHLORIDE. [Suspect]
     Active Substance: PAROXETINE HYDROCHLORIDE
     Indication: TOXICITY TO VARIOUS AGENTS
     Dosage: 14 DOSAGE FORM
     Route: 048
     Dates: start: 20210423, end: 20210423

REACTIONS (5)
  - Vomiting [Recovered/Resolved]
  - Altered state of consciousness [Recovered/Resolved]
  - Nausea [Recovered/Resolved]
  - Vertigo [Recovered/Resolved]
  - Headache [Recovered/Resolved]

NARRATIVE: CASE EVENT DATE: 20210423
